FAERS Safety Report 8728491 (Version 3)
Quarter: 2012Q4

REPORT INFORMATION
  Report Type: 
  Country: AU (occurrence: AU)
  Receive Date: 20120817
  Receipt Date: 20121004
  Transmission Date: 20130627
  Serious: Yes (Death)
  Sender: FDA-Public Use
  Company Number: AU-JNJFOC-20120805966

PATIENT
  Sex: Male
  Weight: 64 kg

DRUGS (5)
  1. RISPERIDONE [Suspect]
     Indication: PRODUCT USED FOR UNKNOWN INDICATION
     Route: 048
  2. CITALOPRAM HYDROBROMIDE [Interacting]
     Indication: PRODUCT USED FOR UNKNOWN INDICATION
     Dosage: dose unspecified
     Route: 048
     Dates: start: 20100408
  3. RABEPRAZOLE SODIUM [Interacting]
     Indication: PRODUCT USED FOR UNKNOWN INDICATION
     Dosage: as necessary
     Route: 048
  4. OLANZAPINE [Concomitant]
     Dosage: Dose unspecified as necessary
     Route: 048
  5. OXAZEPAM [Concomitant]
     Dosage: 7.5 dose unspecified 2 times
     Route: 048

REACTIONS (2)
  - Drug level above therapeutic [Fatal]
  - Drug interaction [Unknown]
